FAERS Safety Report 8960918 (Version 2)
Quarter: 2013Q1

REPORT INFORMATION
  Report Type: Spontaneous
  Country: US (occurrence: US)
  Receive Date: 20121212
  Receipt Date: 20130219
  Transmission Date: 20140127
  Serious: Yes (Death, Hospitalization, Other)
  Sender: FDA-Public Use
  Company Number: US-FRI-1000040922

PATIENT
  Age: 72 Year
  Sex: Male
  Weight: 120.66 kg

DRUGS (27)
  1. VIIBRYD [Suspect]
     Indication: MAJOR DEPRESSION
     Dosage: 10 MG
     Route: 048
     Dates: start: 20121112, end: 20121119
  2. VIIBRYD [Suspect]
     Dosage: 20 MG
     Route: 048
     Dates: start: 20121119, end: 201211
  3. COUMADIN [Concomitant]
     Dosage: 2.5 MG DAILY ON SA, SU, M, TU, W, TH
     Route: 048
  4. COUMADIN [Concomitant]
  5. COUMADIN [Concomitant]
     Dosage: 5 MG ON FRIDAYS
     Route: 048
  6. LOVAZA [Concomitant]
     Dosage: 4 GRAMS
     Route: 048
  7. AMBIEN [Concomitant]
     Indication: INSOMNIA
     Dosage: 5 MG DAILY AT NIGHT PRN
     Route: 048
  8. NOVOLOG MIX [Concomitant]
     Dosage: 40 UNITS BID
     Route: 058
  9. OXYGEN-HELIUM [Concomitant]
     Dosage: 2 LITERS
     Route: 055
  10. LOPRESSOR [Concomitant]
     Dosage: 150 MG IN AM; 100 MG IN PM
     Route: 048
  11. LOPRESSOR [Concomitant]
     Dosage: 100 MG
     Route: 048
  12. KLOR-CON [Concomitant]
     Dosage: 10 MEQ
     Route: 048
  13. PRAVACHOL [Concomitant]
     Dosage: 80 MG IN PM
     Route: 048
  14. ZYLOPRIM [Concomitant]
     Dosage: 200 MG
     Route: 048
  15. CATAPRES [Concomitant]
     Dosage: 0.1 MG
     Route: 048
  16. FOLVITE [Concomitant]
     Dosage: 1 MG
     Route: 048
  17. MINIPRESS [Concomitant]
     Dosage: 30 MG
     Route: 048
  18. DEMADEX [Concomitant]
     Dosage: 80 MG
     Route: 048
  19. DELTASONE [Concomitant]
     Dosage: 5 MG
     Route: 048
  20. PRILOSEC [Concomitant]
     Dosage: 20 MG
     Route: 048
  21. ISOSORBIDE DINITRATE [Concomitant]
     Dosage: 30 MG
     Route: 048
  22. GLUCAGON [Concomitant]
     Indication: HYPOGLYCAEMIA
     Dosage: 0.5-1 MG PRN
     Route: 058
  23. PROGRAF [Concomitant]
     Dosage: 2 MG IN AM; 3 MG IN PM
     Route: 048
  24. CALCITRIOL [Concomitant]
     Dosage: 0.25 MCG
     Route: 048
  25. RAPAMUNE [Concomitant]
     Dosage: 2 MG
     Route: 048
  26. COLACE [Concomitant]
     Dosage: 100 MG AT BEDTIME
     Route: 048
  27. ZAROXOLYN [Concomitant]
     Dosage: 2.5 MG
     Route: 048

REACTIONS (1)
  - Haemorrhage intracranial [Fatal]
